FAERS Safety Report 5845727-X (Version None)
Quarter: 2008Q3

REPORT INFORMATION
  Report Type: 
  Country: None (occurrence: None)
  Receive Date: 20080814
  Receipt Date: 20080808
  Transmission Date: 20090109
  Serious: Yes (Hospitalization)
  Sender: FDA-Public Use
  Company Number: PHHY2008FR15846

PATIENT
  Sex: Female

DRUGS (14)
  1. TAREG [Suspect]
     Dosage: 80 MG, QD
     Route: 048
     Dates: end: 20080317
  2. IDARAC [Suspect]
     Dosage: 4 DAILY DOSES
     Route: 048
     Dates: start: 20080301, end: 20080317
  3. SKENAN [Suspect]
     Dosage: 20 MG, BID
     Route: 048
     Dates: start: 20080301, end: 20080317
  4. CODOLIPRANE [Suspect]
  5. GENTAMYCIN-MP [Concomitant]
     Dosage: UNK
     Route: 042
     Dates: start: 20080301
  6. TAVANIC [Concomitant]
     Dosage: 500 MG, QD
     Route: 048
     Dates: start: 20080301, end: 20080306
  7. CELECTOL [Concomitant]
     Dosage: 200 MG, QD
     Route: 048
     Dates: end: 20080319
  8. LASIX [Concomitant]
     Dosage: 60 MG, QD
     Route: 048
     Dates: end: 20080317
  9. ARIMIDEX [Concomitant]
     Dosage: 1 DF, QD
     Route: 048
     Dates: end: 20080319
  10. AOTAL [Concomitant]
     Dosage: 6 DAILY DOSES
     Dates: end: 20080319
  11. STILNOX                                 /FRA/ [Concomitant]
     Dosage: 0.5 DF, PRN
     Route: 048
     Dates: end: 20080317
  12. TARDYFERON [Concomitant]
     Dosage: 2 DAILY DOSES
     Route: 048
     Dates: end: 20080317
  13. MOVICOL [Concomitant]
     Dosage: 2 DAILY DOSES
     Route: 048
     Dates: end: 20080317
  14. ROCEPHIN [Concomitant]
     Dosage: 1 G, UNK
     Route: 042
     Dates: start: 20080301, end: 20080306

REACTIONS (18)
  - ALTERED STATE OF CONSCIOUSNESS [None]
  - ANURIA [None]
  - ASPARTATE AMINOTRANSFERASE INCREASED [None]
  - BLOOD BILIRUBIN INCREASED [None]
  - BLOOD CREATINE PHOSPHOKINASE INCREASED [None]
  - BLOOD CREATINE PHOSPHOKINASE MB INCREASED [None]
  - BLOOD CREATININE INCREASED [None]
  - DIALYSIS [None]
  - DUODENAL ULCER [None]
  - ESCHERICHIA INFECTION [None]
  - GASTROINTESTINAL HAEMORRHAGE [None]
  - HYPERKALAEMIA [None]
  - MYOGLOBIN BLOOD INCREASED [None]
  - OVERDOSE [None]
  - RENAL FAILURE ACUTE [None]
  - RHABDOMYOLYSIS [None]
  - SHOCK HAEMORRHAGIC [None]
  - SURGERY [None]
